FAERS Safety Report 23668015 (Version 1)
Quarter: 2024Q1

REPORT INFORMATION
  Report Type: Spontaneous
  Country: IN (occurrence: IN)
  Receive Date: 20240325
  Receipt Date: 20240325
  Transmission Date: 20240410
  Serious: Yes (Death, Other)
  Sender: FDA-Public Use
  Company Number: IN-AMGEN-INDSP2024061083

PATIENT

DRUGS (3)
  1. BLINATUMOMAB [Suspect]
     Active Substance: BLINATUMOMAB
     Indication: B-cell type acute leukaemia
     Dosage: UNK ((5-15UG/M^2 PER DAY WAS ADMINISTERED AS A 4-WEEK CONTINUOUS INFUSION)
     Route: 065
  2. INOTUZUMAB OZOGAMICIN [Concomitant]
     Active Substance: INOTUZUMAB OZOGAMICIN
     Indication: B-cell type acute leukaemia
     Dosage: UNK
     Route: 065
  3. TOCILIZUMAB [Concomitant]
     Active Substance: TOCILIZUMAB
     Indication: B-cell type acute leukaemia
     Dosage: UNK
     Route: 065

REACTIONS (6)
  - Acute lymphocytic leukaemia [Unknown]
  - Bacterial sepsis [Fatal]
  - Venoocclusive disease [Fatal]
  - Cytokine release syndrome [Unknown]
  - Therapy non-responder [Unknown]
  - Off label use [Unknown]
